FAERS Safety Report 20154493 (Version 1)
Quarter: 2021Q4

REPORT INFORMATION
  Report Type: Spontaneous
  Country: US (occurrence: None)
  Receive Date: 20211207
  Receipt Date: 20211207
  Transmission Date: 20220303
  Serious: Yes (Hospitalization, Other)
  Sender: FDA-Public Use
  Company Number: US-VistaPharm, Inc.-VER202111-002222

PATIENT
  Age: 67 Year
  Sex: Male

DRUGS (1)
  1. METHADONE [Suspect]
     Active Substance: METHADONE HYDROCHLORIDE
     Indication: Product used for unknown indication
     Dosage: UNKNOWN
     Route: 065

REACTIONS (5)
  - Intestinal ischaemia [Recovered/Resolved]
  - Rectal haemorrhage [Recovered/Resolved]
  - Faecaloma [Recovered/Resolved]
  - Colitis ischaemic [Recovered/Resolved]
  - Constipation [Recovered/Resolved]
